FAERS Safety Report 10838821 (Version 1)
Quarter: 2015Q1

REPORT INFORMATION
  Report Type: Report from Study
  Country: US (occurrence: US)
  Receive Date: 20150219
  Receipt Date: 20150219
  Transmission Date: 20150721
  Serious: No
  Sender: FDA-Public Use
  Company Number: US-ABBVIE-14P-163-1228142-00

PATIENT
  Age: 85 Year
  Sex: Female
  Weight: 55.84 kg

DRUGS (5)
  1. FOLIC ACID. [Concomitant]
     Active Substance: FOLIC ACID
     Indication: RHEUMATOID ARTHRITIS
  2. PREDNISONE. [Concomitant]
     Active Substance: PREDNISONE
     Indication: RHEUMATOID ARTHRITIS
  3. HUMIRA [Suspect]
     Active Substance: ADALIMUMAB
     Indication: RHEUMATOID ARTHRITIS
     Route: 058
     Dates: start: 201403
  4. METHOTREXATE [Concomitant]
     Active Substance: METHOTREXATE
     Indication: RHEUMATOID ARTHRITIS
  5. MULTIVITAMIN [Concomitant]
     Active Substance: VITAMINS
     Indication: VITAMIN SUPPLEMENTATION

REACTIONS (3)
  - Injection site haemorrhage [Recovered/Resolved]
  - Injection site bruising [Recovering/Resolving]
  - Injection site pain [Recovered/Resolved]

NARRATIVE: CASE EVENT DATE: 20140410
